FAERS Safety Report 6468186-5 (Version None)
Quarter: 2009Q4

REPORT INFORMATION
  Report Type: 
  Country: None (occurrence: None)
  Receive Date: 20091127
  Receipt Date: 20091116
  Transmission Date: 20100525
  Serious: Yes (Other)
  Sender: FDA-Public Use
  Company Number: CIP09003240

PATIENT

DRUGS (1)
  1. ASACOL [Suspect]
     Indication: COLITIS ULCERATIVE
     Dosage: 1.6G MORNING, 0.8 EVENING, ORAL
     Route: 048

REACTIONS (12)
  - ANAL ABSCESS [None]
  - COLITIS ULCERATIVE [None]
  - EPISTAXIS [None]
  - GASTROINTESTINAL DISORDER [None]
  - HAEMORRHOIDS [None]
  - INFLUENZA LIKE ILLNESS [None]
  - NERVOUS SYSTEM DISORDER [None]
  - PANCREATIC ENZYMES INCREASED [None]
  - PROTEINURIA [None]
  - RENAL COLIC [None]
  - TREATMENT NONCOMPLIANCE [None]
  - WITHDRAWAL SYNDROME [None]
